FAERS Safety Report 7630475-6 (Version None)
Quarter: 2011Q3

REPORT INFORMATION
  Report Type: 
  Country: None (occurrence: None)
  Receive Date: 20110722
  Receipt Date: 20110713
  Transmission Date: 20111222
  Serious: Yes (Hospitalization)
  Sender: FDA-Public Use
  Company Number: GXKR2011DK01273

PATIENT
  Sex: Male

DRUGS (9)
  1. OXALIPLATIN [Suspect]
     Route: 042
  2. OXALIPLATIN [Suspect]
     Dosage: DOSIS: 260 MG
     Route: 042
     Dates: start: 20101221
  3. AVASTIN [Suspect]
     Route: 042
  4. XELODA [Suspect]
     Route: 048
  5. OXALIPLATIN [Suspect]
     Indication: RECTAL CANCER
     Dosage: UNK UKN, UNK
  6. AVASTIN [Suspect]
     Indication: RECTAL CANCER
     Dosage: UNK UKN, UNK
     Route: 065
  7. XELODA [Suspect]
     Indication: RECTAL CANCER
     Dosage: UNK UKN, UNK
     Route: 065
  8. XELODA [Suspect]
     Route: 048
  9. AVASTIN [Suspect]
     Route: 042

REACTIONS (4)
  - ABDOMINAL PAIN UPPER [None]
  - INFECTION [None]
  - INFECTIOUS PERITONITIS [None]
  - RECTAL PERFORATION [None]
